FAERS Safety Report 5160369-X (Version None)
Quarter: 2006Q4

REPORT INFORMATION
  Report Type: 
  Country: None (occurrence: None)
  Receive Date: 20061121
  Receipt Date: 20061107
  Transmission Date: 20070319
  Serious: Yes (Hospitalization)
  Sender: FDA-Public Use
  Company Number: 2006PV024244

PATIENT
  Age: 54 Year
  Sex: Female
  Weight: 117.028 kg

DRUGS (14)
  1. BYETTA [Suspect]
     Indication: DIABETES MELLITUS NON-INSULIN-DEPENDENT
     Dosage: SEE IMAGE
     Route: 058
     Dates: start: 20060321, end: 20060421
  2. BYETTA [Suspect]
     Indication: DIABETES MELLITUS NON-INSULIN-DEPENDENT
     Dosage: SEE IMAGE
     Route: 058
     Dates: start: 20060422, end: 20060808
  3. METFORMIN [Concomitant]
  4. HYDROCODONE [Concomitant]
  5. METHOCARBAN [Concomitant]
  6. GABAPENTIN [Concomitant]
  7. CYMBALTA [Concomitant]
  8. SEROQUEL [Concomitant]
  9. TRAZODONE HCL [Concomitant]
  10. NEXIUM [Concomitant]
  11. PREMPRO [Concomitant]
  12. VITAMIN B-12 [Concomitant]
  13. FISH OIL [Concomitant]
  14. STOOL SOFTENER [Concomitant]

REACTIONS (31)
  - ABDOMINAL DISTENSION [None]
  - ANAEMIA [None]
  - APHASIA [None]
  - ASTHENIA [None]
  - BLOOD IRON DECREASED [None]
  - CONDITION AGGRAVATED [None]
  - CONFUSIONAL STATE [None]
  - DIARRHOEA [None]
  - DIZZINESS [None]
  - ERUCTATION [None]
  - GASTROOESOPHAGEAL REFLUX DISEASE [None]
  - HEADACHE [None]
  - HEPATITIS E [None]
  - HERPES ZOSTER [None]
  - HYPERTENSION [None]
  - IMMUNE SYSTEM DISORDER [None]
  - MALAISE [None]
  - MENORRHAGIA [None]
  - MUSCULAR WEAKNESS [None]
  - NAUSEA [None]
  - OEDEMA [None]
  - OEDEMA PERIPHERAL [None]
  - PAIN [None]
  - SCIATICA [None]
  - SKIN LESION [None]
  - SKIN ULCER [None]
  - SPEECH DISORDER [None]
  - STOMATITIS [None]
  - SYNCOPE [None]
  - VOMITING [None]
  - WHITE BLOOD CELL COUNT DECREASED [None]
